FAERS Safety Report 5843863-5 (Version None)
Quarter: 2008Q3

REPORT INFORMATION
  Report Type: 
  Country: None (occurrence: None)
  Receive Date: 20080813
  Receipt Date: 20080807
  Transmission Date: 20090109
  Serious: Yes (Hospitalization)
  Sender: FDA-Public Use
  Company Number: PHHY2008JP17256

PATIENT
  Sex: Female

DRUGS (3)
  1. NEORAL [Suspect]
     Indication: NEPHROTIC SYNDROME
     Dosage: 100 MG, BID
     Route: 048
  2. NEORAL [Suspect]
     Dosage: 100 MG, QD
     Route: 048
  3. NEORAL [Suspect]
     Dosage: 75 MG/DAY
     Route: 048

REACTIONS (3)
  - FEELING ABNORMAL [None]
  - LIVER DISORDER [None]
  - LIVER FUNCTION TEST ABNORMAL [None]
